FAERS Safety Report 6182798-8 (Version None)
Quarter: 2009Q2

REPORT INFORMATION
  Report Type: 
  Country: None (occurrence: None)
  Receive Date: 20090507
  Receipt Date: 20090429
  Transmission Date: 20091009
  Serious: Yes (Other)
  Sender: FDA-Public Use
  Company Number: ZA-AVENTIS-200914430GDDC

PATIENT

DRUGS (2)
  1. KETEK [Suspect]
     Dosage: DOSE: UNK
     Route: 048
  2. COUGH AND COLD PREPARATIONS [Concomitant]

REACTIONS (1)
  - EPILEPSY [None]
